FAERS Safety Report 6178750-9 (Version None)
Quarter: 2009Q2

REPORT INFORMATION
  Report Type: 
  Country: None (occurrence: None)
  Receive Date: 20090504
  Receipt Date: 20081117
  Transmission Date: 20091009
  Serious: No
  Sender: FDA-Public Use
  Company Number: US-ALEXION-A200800351

PATIENT

DRUGS (1)
  1. SOLIRIS [Suspect]
     Indication: PAROXYSMAL NOCTURNAL HAEMOGLOBINURIA
     Dates: start: 20070426, end: 20081101

REACTIONS (3)
  - HAEMOGLOBIN DECREASED [None]
  - NASOPHARYNGITIS [None]
  - PYREXIA [None]
